FAERS Safety Report 8825104 (Version 1)
Quarter: 2012Q4

REPORT INFORMATION
  Report Type: 
  Country: US (occurrence: US)
  Receive Date: 20121004
  Receipt Date: 20121004
  Transmission Date: 20130627
  Serious: Yes (Other)
  Sender: FDA-Public Use
  Company Number: US-JNJFOC-20120911644

PATIENT
  Sex: Female
  Weight: 41.73 kg

DRUGS (26)
  1. TRAMADOL HYDROCHLORIDE [Suspect]
     Indication: PAIN
     Dosage: as needed
     Route: 048
     Dates: start: 2012
  2. TRAMADOL HYDROCHLORIDE [Suspect]
     Indication: PAIN
     Dosage: as  needed
     Route: 048
     Dates: start: 20120703
  3. VFEND [Suspect]
     Indication: PROPHYLAXIS
     Dosage: every 12 hours
     Route: 048
     Dates: start: 201112
  4. PREDNISONE [Suspect]
     Indication: LUNG TRANSPLANT
     Dosage: daily,
     Route: 065
  5. UNSPECIFIED INGREDIENT [Suspect]
     Indication: PRODUCT USED FOR UNKNOWN INDICATION
     Route: 065
  6. PENCICLOVIR [Concomitant]
     Indication: ORAL HERPES
     Dosage: 2/day
     Route: 065
  7. TACROLIMUS [Concomitant]
     Dosage: every 12 hours
     Route: 048
  8. MYCOPHENOLATE [Concomitant]
     Dosage: every 12 hours
     Route: 065
  9. SYNTHROID [Concomitant]
     Indication: THYROID DISORDER
     Dosage: daily
     Route: 065
  10. ESTROGEN [Concomitant]
     Dosage: as needed
     Route: 065
  11. ASPIRIN [Concomitant]
     Indication: ANTICOAGULANT THERAPY
     Dosage: daily
     Route: 065
  12. AZITHROMYCIN [Concomitant]
     Indication: PROPHYLAXIS
     Dosage: 3x/week
     Route: 065
  13. AMOXICILLIN [Concomitant]
     Indication: PROPHYLAXIS URINARY TRACT INFECTION
     Dosage: daily
     Route: 048
  14. ALENDRONATE [Concomitant]
     Dosage: weekly
     Route: 065
  15. CALCIUM CARBONATE [Concomitant]
     Dosage: daily
     Route: 065
  16. ALBUTEROL [Concomitant]
     Dosage: as needed
     Route: 065
  17. VITAMIN B12 [Concomitant]
     Indication: PERNICIOUS ANAEMIA
     Dosage: monthly
     Route: 065
  18. VITAMIN D [Concomitant]
     Dosage: daily
     Route: 065
  19. MULTIVITAMINS [Concomitant]
     Dosage: daily
     Route: 065
  20. SULFAMETHOXAZOLE/TRIMETHOPRIM [Concomitant]
     Indication: LUNG INFECTION
     Dosage: 3x/week
     Route: 065
  21. PROBIOTIC [Concomitant]
     Indication: LACTOSE INTOLERANCE
     Dosage: daily
     Route: 065
  22. ACYCLOVIR [Concomitant]
     Route: 065
  23. PANTOPRAZOLE [Concomitant]
     Indication: GASTRITIS
     Dosage: daily
     Route: 065
  24. LOVASTATIN [Concomitant]
     Indication: BLOOD CHOLESTEROL INCREASED
     Dosage: daily
     Route: 065
  25. BENADRYL [Concomitant]
     Indication: SLEEP DISORDER
     Route: 065
  26. MAGNESIUM [Concomitant]
     Route: 065

REACTIONS (4)
  - Hallucination [Not Recovered/Not Resolved]
  - Rib fracture [Unknown]
  - Gastritis [Unknown]
  - Glaucoma [Unknown]
